FAERS Safety Report 9700352 (Version 1)
Quarter: 2013Q4

REPORT INFORMATION
  Report Type: Other
  Country: US (occurrence: US)
  Receive Date: 20131121
  Receipt Date: 20131121
  Transmission Date: 20140711
  Serious: No
  Sender: FDA-Public Use
  Company Number: US-ENDO PHARMACEUTICALS INC.-METO20120025

PATIENT
  Sex: Female

DRUGS (1)
  1. METOCLOPRAMIDE HYDROCHLORIDE [Suspect]
     Indication: PRODUCT USED FOR UNKNOWN INDICATION
     Dosage: UNKNOWN
     Route: 048

REACTIONS (9)
  - Tardive dyskinesia [Unknown]
  - Condition aggravated [Unknown]
  - Incorrect drug administration duration [Unknown]
  - Neuropathy peripheral [Unknown]
  - Parkinsonism [Unknown]
  - Suicidal ideation [Unknown]
  - Akathisia [Unknown]
  - Dystonia [Unknown]
  - Metabolic disorder [Unknown]
